FAERS Safety Report 9166462 (Version 2)
Quarter: 2013Q3

REPORT INFORMATION
  Report Type: Spontaneous
  Country: FR (occurrence: FR)
  Receive Date: 20130315
  Receipt Date: 20130704
  Transmission Date: 20140515
  Serious: Yes (Life-Threatening, Hospitalization)
  Sender: FDA-Public Use
  Company Number: PHHY2013FR025123

PATIENT
  Age: 48 Year
  Sex: Female

DRUGS (4)
  1. VOLTARENE [Suspect]
     Indication: PAIN
     Dosage: UNK UKN, UNK
     Route: 048
     Dates: start: 20130122, end: 20130122
  2. VOLTARENE [Suspect]
     Dosage: 87.5 MG, UNK
     Route: 048
     Dates: start: 20130517, end: 20130517
  3. PARACETAMOL [Suspect]
     Indication: PAIN
     Dosage: UNK UKN, UNK
     Route: 048
     Dates: start: 20130122, end: 20130122
  4. DEXTROPROPOXYPHENE [Suspect]
     Indication: PAIN
     Dosage: UNK UKN, UNK
     Route: 048
     Dates: start: 20130122, end: 20130122

REACTIONS (8)
  - Anaphylactic shock [Recovered/Resolved]
  - Palatal oedema [Recovered/Resolved]
  - Urticaria [Recovered/Resolved]
  - Malaise [Unknown]
  - Rash pruritic [Unknown]
  - Blood pressure diastolic decreased [Unknown]
  - Pruritus [Unknown]
  - Face oedema [Unknown]
